FAERS Safety Report 17004511 (Version 2)
Quarter: 2019Q4

REPORT INFORMATION
  Report Type: Spontaneous
  Country: NL (occurrence: NL)
  Receive Date: 20191107
  Receipt Date: 20191220
  Transmission Date: 20200122
  Serious: Yes (Life-Threatening, Hospitalization, Other)
  Sender: FDA-Public Use
  Company Number: NL-SA-2019SA307273

PATIENT
  Age: 58 Year
  Sex: Female
  Weight: 73 kg

DRUGS (3)
  1. DUPILUMAB [Suspect]
     Active Substance: DUPILUMAB
     Indication: ASTHMA
     Dosage: 600 MG, 1ST INJECTION 4-9-2019: 1X600 MG SC
     Route: 058
     Dates: start: 20190904, end: 20190905
  2. DUPILUMAB [Suspect]
     Active Substance: DUPILUMAB
     Indication: SINUSITIS
     Dosage: 300 MG, 2ND INJECTION 18-9: 1X300 MG SC, THEN STOPPED
     Route: 058
     Dates: start: 20190918, end: 20190919
  3. BENRALIZUMAB. [Concomitant]
     Active Substance: BENRALIZUMAB
     Indication: ASTHMA

REACTIONS (15)
  - Acute coronary syndrome [Recovered/Resolved]
  - Cardiac arrest [Recovered/Resolved with Sequelae]
  - Muscular weakness [Recovered/Resolved]
  - Facial pain [Recovering/Resolving]
  - Cerebral infarction [Recovered/Resolved]
  - Arthralgia [Not Recovered/Not Resolved]
  - Malaise [Unknown]
  - Dysarthria [Recovered/Resolved]
  - Cough [Unknown]
  - Fatigue [Unknown]
  - Eosinophilic pneumonia [Recovered/Resolved]
  - Off label use [Unknown]
  - Disturbance in attention [Unknown]
  - Eosinophil count increased [Recovering/Resolving]
  - Oropharyngeal pain [Unknown]

NARRATIVE: CASE EVENT DATE: 20190905
